FAERS Safety Report 17655711 (Version 1)
Quarter: 2020Q2

REPORT INFORMATION
  Report Type: Spontaneous
  Country: US (occurrence: US)
  Receive Date: 20200410
  Receipt Date: 20200410
  Transmission Date: 20200713
  Serious: No
  Sender: FDA-Public Use
  Company Number: None

PATIENT
  Age: 62 Year
  Sex: Female
  Weight: 55.8 kg

DRUGS (12)
  1. SYNTHROID [Concomitant]
     Active Substance: LEVOTHYROXINE SODIUM
  2. VITAMIN D [Concomitant]
     Active Substance: VITAMIN D NOS
  3. VITAMIN E [Concomitant]
     Active Substance: .ALPHA.-TOCOPHEROL
  4. VITAMIN B [Concomitant]
     Active Substance: VITAMIN B
  5. SINGULAIR [Concomitant]
     Active Substance: MONTELUKAST SODIUM
  6. LAMOTRIGINE ODT TABLETS [Suspect]
     Active Substance: LAMOTRIGINE
     Indication: BIPOLAR DISORDER
     Dosage: ?          QUANTITY:1 TABLET(S);?
     Route: 060
     Dates: start: 20200131, end: 20200410
  7. XANAX [Concomitant]
     Active Substance: ALPRAZOLAM
  8. ALBUTEROL INHALER [Concomitant]
     Active Substance: ALBUTEROL
  9. TRAZODONE [Concomitant]
     Active Substance: TRAZODONE HYDROCHLORIDE
  10. NEBULIZER PRN [Concomitant]
  11. BACLOFEN. [Concomitant]
     Active Substance: BACLOFEN
  12. GABAPENTIN. [Concomitant]
     Active Substance: GABAPENTIN

REACTIONS (1)
  - Night sweats [None]

NARRATIVE: CASE EVENT DATE: 20200131
